FAERS Safety Report 24433555 (Version 2)
Quarter: 2024Q4

REPORT INFORMATION
  Report Type: Report from Study
  Country: BE (occurrence: BE)
  Receive Date: 20241014
  Receipt Date: 20241024
  Transmission Date: 20250115
  Serious: Yes (Death, Hospitalization, Other)
  Sender: GLAXOSMITHKLINE
  Company Number: None

PATIENT

DRUGS (19)
  1. EPOPROSTENOL SODIUM [Suspect]
     Active Substance: EPOPROSTENOL SODIUM
     Indication: Pulmonary arterial hypertension
     Dosage: 2 NG/KG
     Route: 042
     Dates: start: 20220713, end: 20220715
  2. EPOPROSTENOL SODIUM [Suspect]
     Active Substance: EPOPROSTENOL SODIUM
     Dosage: 6 NG/KG
     Route: 042
     Dates: start: 20220715, end: 20220719
  3. EPOPROSTENOL SODIUM [Suspect]
     Active Substance: EPOPROSTENOL SODIUM
     Dosage: 7 NG/KG
     Route: 042
     Dates: start: 20220719, end: 20220720
  4. EPOPROSTENOL SODIUM [Suspect]
     Active Substance: EPOPROSTENOL SODIUM
     Dosage: 8 NG/KG
     Route: 042
     Dates: start: 20220720, end: 20220727
  5. EPOPROSTENOL SODIUM [Suspect]
     Active Substance: EPOPROSTENOL SODIUM
     Dosage: 10 NG/KG
     Route: 042
     Dates: start: 20220727, end: 20220817
  6. EPOPROSTENOL SODIUM [Suspect]
     Active Substance: EPOPROSTENOL SODIUM
     Dosage: 10.5 NG/KG
     Route: 042
     Dates: start: 20220817, end: 20220823
  7. EPOPROSTENOL SODIUM [Suspect]
     Active Substance: EPOPROSTENOL SODIUM
     Dosage: 11 NG/KG
     Route: 042
     Dates: start: 20220823, end: 20220829
  8. EPOPROSTENOL SODIUM [Suspect]
     Active Substance: EPOPROSTENOL SODIUM
     Dosage: 11.5 NG/KG
     Route: 042
     Dates: start: 20220920, end: 20230117
  9. EPOPROSTENOL SODIUM [Suspect]
     Active Substance: EPOPROSTENOL SODIUM
     Dosage: 12 NG/KG
     Route: 042
     Dates: start: 20220912, end: 20220920
  10. EPOPROSTENOL SODIUM [Suspect]
     Active Substance: EPOPROSTENOL SODIUM
     Dosage: 11.5 NG/KG
     Route: 042
     Dates: start: 20220829, end: 20220912
  11. EPOPROSTENOL SODIUM [Suspect]
     Active Substance: EPOPROSTENOL SODIUM
     Dosage: 12 NG/KG
     Route: 042
     Dates: start: 20230117, end: 20230125
  12. EPOPROSTENOL SODIUM [Suspect]
     Active Substance: EPOPROSTENOL SODIUM
     Dosage: 12.5 NG/KG
     Route: 042
     Dates: start: 20230125, end: 20230208
  13. EPOPROSTENOL SODIUM [Suspect]
     Active Substance: EPOPROSTENOL SODIUM
     Dosage: 13 NG/KG
     Route: 042
     Dates: start: 20231014, end: 20231024
  14. EPOPROSTENOL SODIUM [Suspect]
     Active Substance: EPOPROSTENOL SODIUM
     Dosage: 14 UNK
     Route: 042
     Dates: start: 20230221, end: 20231017
  15. EPOPROSTENOL SODIUM [Suspect]
     Active Substance: EPOPROSTENOL SODIUM
     Dosage: 13 NG/KG
     Route: 042
     Dates: start: 20230208, end: 20230221
  16. EPOPROSTENOL SODIUM [Suspect]
     Active Substance: EPOPROSTENOL SODIUM
     Dosage: 12 NG/KG
     Route: 042
     Dates: start: 20231024
  17. MACITENTAN [Suspect]
     Active Substance: MACITENTAN
     Indication: Pulmonary arterial hypertension
     Dosage: 10 MG, QD
     Route: 048
     Dates: start: 20220715
  18. NEBIVOLOL [Concomitant]
     Active Substance: NEBIVOLOL
     Indication: Arrhythmia
     Dosage: UNK
     Route: 048
  19. ADCIRCA [Concomitant]
     Active Substance: TADALAFIL
     Indication: Pulmonary arterial hypertension
     Dosage: UNK
     Route: 048
     Dates: start: 20220718

REACTIONS (6)
  - Right ventricular failure [Fatal]
  - Respiratory distress [Not Recovered/Not Resolved]
  - Acute respiratory failure [Unknown]
  - Pulmonary hypertension [Unknown]
  - Chest pain [Not Recovered/Not Resolved]
  - Urinary tract infection [Recovered/Resolved]

NARRATIVE: CASE EVENT DATE: 20240607
